FAERS Safety Report 19282084 (Version 1)
Quarter: 2021Q2

REPORT INFORMATION
  Report Type: Report from Study
  Country: US (occurrence: US)
  Receive Date: 20210520
  Receipt Date: 20210520
  Transmission Date: 20210717
  Serious: Yes (Hospitalization)
  Sender: FDA-Public Use
  Company Number: US-GILEAD-2021-0530959

PATIENT
  Age: 24 Year
  Sex: Female

DRUGS (38)
  1. COENZYME Q10 [Concomitant]
     Active Substance: DIETARY SUPPLEMENT\UBIDECARENONE
  2. CULTURELLE [Concomitant]
     Active Substance: LACTOBACILLUS RHAMNOSUS
  3. LYUMJEV [INSULIN LISPRO] [Concomitant]
  4. MAGNESIUM [Concomitant]
     Active Substance: MAGNESIUM
  5. SODIUM CHLORIDE. [Concomitant]
     Active Substance: SODIUM CHLORIDE
  6. CETIRIZINE [Concomitant]
     Active Substance: CETIRIZINE HYDROCHLORIDE
  7. CICLOPIROX. [Concomitant]
     Active Substance: CICLOPIROX
  8. LANTUS [Concomitant]
     Active Substance: INSULIN GLARGINE
  9. OMEGA 3 [FISH OIL] [Concomitant]
     Active Substance: FISH OIL
  10. ZENPEP [Concomitant]
     Active Substance: PANCRELIPASE AMYLASE\PANCRELIPASE LIPASE\PANCRELIPASE PROTEASE
  11. BUPROPION HCL [Concomitant]
     Active Substance: BUPROPION HYDROCHLORIDE
  12. CALCIUM CARBONATE. [Concomitant]
     Active Substance: CALCIUM CARBONATE
  13. MELATONIN [Concomitant]
     Active Substance: MELATONIN
  14. NAC [ACETYLCYSTEINE] [Concomitant]
     Active Substance: ACETYLCYSTEINE
  15. AZITHROMYCIN ANHYDROUS. [Concomitant]
     Active Substance: AZITHROMYCIN ANHYDROUS
  16. FLUOXETINE [Concomitant]
     Active Substance: FLUOXETINE HYDROCHLORIDE
  17. NOVOLOG [Concomitant]
     Active Substance: INSULIN ASPART
  18. TRIKAFTA [Concomitant]
     Active Substance: ELEXACAFTOR\IVACAFTOR\TEZACAFTOR
  19. ZOLOFT [Concomitant]
     Active Substance: SERTRALINE HYDROCHLORIDE
  20. CLOBETASOL [Concomitant]
     Active Substance: CLOBETASOL
  21. FLUTICASONE. [Concomitant]
     Active Substance: FLUTICASONE
  22. PREDNISONE. [Concomitant]
     Active Substance: PREDNISONE
  23. VIT B12 + FOLIC AC [Concomitant]
  24. GINSENG AMERICANO [Concomitant]
  25. OMEPRAZOLE. [Concomitant]
     Active Substance: OMEPRAZOLE
  26. PULMOZYME [Concomitant]
     Active Substance: DORNASE ALFA
  27. VITAMIN D3 [Concomitant]
     Active Substance: CHOLECALCIFEROL
  28. VITAMIN K [Concomitant]
     Active Substance: PHYTONADIONE
  29. AZTREONAM LYSINE [Suspect]
     Active Substance: AZTREONAM LYSINE
     Indication: CYSTIC FIBROSIS LUNG
     Dosage: 75 MG, TID, ALTERNATE ON/OFF EVERY 28 DAYS
     Route: 055
     Dates: start: 20170825
  30. LEVALBUTEROL [LEVOSALBUTAMOL] [Concomitant]
     Active Substance: LEVALBUTEROL
  31. SALINE NASAL SPRAY [Concomitant]
     Active Substance: SODIUM CHLORIDE
  32. ALBUTEROL HFA [Concomitant]
     Active Substance: ALBUTEROL SULFATE
  33. FLONASE [Concomitant]
     Active Substance: FLUTICASONE PROPIONATE
  34. HYDROXYZINE PAM [Concomitant]
     Active Substance: HYDROXYZINE PAMOATE
  35. LORAZEPAM. [Concomitant]
     Active Substance: LORAZEPAM
  36. SYMBICORT [Concomitant]
     Active Substance: BUDESONIDE\FORMOTEROL FUMARATE DIHYDRATE
  37. VIT E [TOCOPHEROL] [Concomitant]
  38. VITAMIN C [Concomitant]
     Active Substance: ASCORBIC ACID

REACTIONS (1)
  - Mental disorder [Unknown]

NARRATIVE: CASE EVENT DATE: 202104
